FAERS Safety Report 11820780 (Version 1)
Quarter: 2015Q4

REPORT INFORMATION
  Report Type: Spontaneous
  Country: US (occurrence: US)
  Receive Date: 20151210
  Receipt Date: 20151210
  Transmission Date: 20160305
  Serious: No
  Sender: FDA-Public Use
  Company Number: US-JNJFOC-20150617191

PATIENT
  Age: 92 Year
  Sex: Female

DRUGS (14)
  1. CALCIUM CARBONATE AND VITAMIN D [Concomitant]
  2. IMBRUVICA [Suspect]
     Active Substance: IBRUTINIB
     Indication: CHRONIC LYMPHOCYTIC LEUKAEMIA
     Route: 048
     Dates: start: 20150505, end: 20150514
  3. BACTRIM DS [Concomitant]
     Active Substance: SULFAMETHOXAZOLE\TRIMETHOPRIM
  4. AMIODARONE [Concomitant]
     Active Substance: AMIODARONE
  5. COLACE [Concomitant]
     Active Substance: DOCUSATE SODIUM
  6. CHLORTHALIDONE. [Concomitant]
     Active Substance: CHLORTHALIDONE
  7. ICAPS [Concomitant]
     Active Substance: MINERALS\VITAMINS
  8. OMEPRAZOLE. [Concomitant]
     Active Substance: OMEPRAZOLE
  9. VITAMIN D3 [Concomitant]
     Active Substance: CHOLECALCIFEROL
  10. ACETAMINOPHEN. [Concomitant]
     Active Substance: ACETAMINOPHEN
  11. IMBRUVICA [Suspect]
     Active Substance: IBRUTINIB
     Indication: CHRONIC LYMPHOCYTIC LEUKAEMIA
     Dosage: 140MG, QOD ALTERNATING WITH 280MG
     Route: 048
     Dates: start: 201505
  12. IMBRUVICA [Suspect]
     Active Substance: IBRUTINIB
     Indication: CHRONIC LYMPHOCYTIC LEUKAEMIA
     Route: 048
     Dates: start: 2015
  13. IMBRUVICA [Suspect]
     Active Substance: IBRUTINIB
     Indication: CHRONIC LYMPHOCYTIC LEUKAEMIA
     Route: 048
     Dates: start: 20150515, end: 201505
  14. WARFARIN [Concomitant]
     Active Substance: WARFARIN

REACTIONS (6)
  - Constipation [Recovering/Resolving]
  - Incorrect dose administered [Unknown]
  - Contusion [Recovering/Resolving]
  - Asthenia [Recovering/Resolving]
  - Pain in extremity [Unknown]
  - Peripheral swelling [Recovering/Resolving]

NARRATIVE: CASE EVENT DATE: 201505
